FAERS Safety Report 25407980 (Version 1)
Quarter: 2025Q2

REPORT INFORMATION
  Report Type: Spontaneous
  Country: US (occurrence: US)
  Receive Date: 20250606
  Receipt Date: 20250606
  Transmission Date: 20250717
  Serious: No
  Sender: MERCK SHARP & DOHME LLC
  Company Number: US-009507513-2290652

PATIENT
  Sex: Female
  Weight: 526.2 kg

DRUGS (26)
  1. WINREVAIR [Suspect]
     Active Substance: SOTATERCEPT-CSRK
     Route: 058
  2. WINREVAIR [Suspect]
     Active Substance: SOTATERCEPT-CSRK
  3. WINREVAIR [Suspect]
     Active Substance: SOTATERCEPT-CSRK
  4. WINREVAIR [Suspect]
     Active Substance: SOTATERCEPT-CSRK
  5. REMODULIN [Suspect]
     Active Substance: TREPROSTINIL
     Route: 058
     Dates: start: 20250107
  6. MELATONIN [Concomitant]
     Active Substance: MELATONIN
  7. ALDACTONE [Concomitant]
     Active Substance: SPIRONOLACTONE
  8. TRAZODONE [Concomitant]
     Active Substance: TRAZODONE HYDROCHLORIDE
  9. EFFEXOR [Concomitant]
     Active Substance: VENLAFAXINE HYDROCHLORIDE
  10. LASIX [Concomitant]
     Active Substance: FUROSEMIDE
  11. LORAZEPAM [Concomitant]
     Active Substance: LORAZEPAM
  12. OPSUMIT [Concomitant]
     Active Substance: MACITENTAN
  13. AMLODIPINE BESYLATE [Concomitant]
     Active Substance: AMLODIPINE BESYLATE
  14. POTASSIUM CHLORIDE [Concomitant]
     Active Substance: POTASSIUM CHLORIDE
  15. NEXIUM [Concomitant]
     Active Substance: ESOMEPRAZOLE MAGNESIUM
  16. LIPITOR [Concomitant]
     Active Substance: ATORVASTATIN CALCIUM
  17. TADALAFIL [Concomitant]
     Active Substance: TADALAFIL
  18. ACETAMINOPHEN\HYDROCODONE [Concomitant]
     Active Substance: ACETAMINOPHEN\HYDROCODONE
  19. BUDESONIDE [Concomitant]
     Active Substance: BUDESONIDE
  20. OXYGEN [Concomitant]
     Active Substance: OXYGEN
  21. ASPIRIN [Concomitant]
     Active Substance: ASPIRIN
  22. RECLAST [Concomitant]
     Active Substance: ZOLEDRONIC ACID
  23. VITAMIN D3 [Concomitant]
     Active Substance: CHOLECALCIFEROL
  24. IRON [Concomitant]
     Active Substance: IRON
  25. TORSEMIDE [Concomitant]
     Active Substance: TORSEMIDE
  26. LOPERAMIDE [Concomitant]
     Active Substance: LOPERAMIDE

REACTIONS (1)
  - Nausea [Unknown]
